FAERS Safety Report 23063104 (Version 2)
Quarter: 2023Q4

REPORT INFORMATION
  Report Type: Spontaneous
  Country: IT (occurrence: IT)
  Receive Date: 20231013
  Receipt Date: 20231028
  Transmission Date: 20240109
  Serious: Yes (Hospitalization, Other)
  Sender: FDA-Public Use
  Company Number: None

PATIENT
  Age: 32 Year
  Sex: Female

DRUGS (4)
  1. OLANZAPINE [Suspect]
     Active Substance: OLANZAPINE
     Indication: Personality disorder
     Dosage: 6 CP 10MG
  2. PREGABALIN [Suspect]
     Active Substance: PREGABALIN
     Indication: Personality disorder
     Dosage: NOT KNOWN
     Dates: start: 20230325
  3. CITALOPRAM [Suspect]
     Active Substance: CITALOPRAM HYDROBROMIDE
     Indication: Personality disorder
     Dosage: NOT KNOWN
     Dates: start: 20230325
  4. DELORAZEPAM [Suspect]
     Active Substance: DELORAZEPAM
     Indication: Personality disorder
     Dosage: 1 BOTTLE
     Dates: start: 20230325

REACTIONS (4)
  - Sopor [Unknown]
  - Drug abuse [Unknown]
  - Drug dependence [Unknown]
  - Intentional product misuse [Unknown]

NARRATIVE: CASE EVENT DATE: 20230325
